FAERS Safety Report 7420883-0 (Version None)
Quarter: 2011Q2

REPORT INFORMATION
  Report Type: 
  Country: None (occurrence: None)
  Receive Date: 20110418
  Receipt Date: 20110412
  Transmission Date: 20111010
  Serious: Yes (Hospitalization)
  Sender: FDA-Public Use
  Company Number: A0903052A

PATIENT
  Age: 85 Year
  Sex: Female
  Weight: 69.1 kg

DRUGS (1)
  1. AVANDIA [Suspect]
     Indication: DIABETES MELLITUS
     Dosage: 4MG PER DAY
     Route: 048
     Dates: start: 20060424, end: 20100419

REACTIONS (6)
  - ACUTE MYOCARDIAL INFARCTION [None]
  - ACUTE CORONARY SYNDROME [None]
  - ISCHAEMIC CARDIOMYOPATHY [None]
  - CORONARY ARTERY DISEASE [None]
  - ACUTE PULMONARY OEDEMA [None]
  - SPINAL COMPRESSION FRACTURE [None]
